FAERS Safety Report 9765102 (Version 1)
Quarter: 2013Q4

REPORT INFORMATION
  Report Type: Spontaneous
  Country: US (occurrence: None)
  Receive Date: 20131216
  Receipt Date: 20131216
  Transmission Date: 20140711
  Serious: Yes (Disabling)
  Sender: FDA-Public Use
  Company Number: None

PATIENT
  Age: 39 Year
  Sex: Female
  Weight: 50.8 kg

DRUGS (2)
  1. CREST PRO HEALTH TOOTHPASTE [Suspect]
     Indication: DENTAL CLEANING
     Route: 048
     Dates: start: 201303, end: 201312
  2. CREST PRO HEALTH TOOTHPASTE [Suspect]
     Indication: DENTAL CARE
     Route: 048
     Dates: start: 201303, end: 201312

REACTIONS (4)
  - Ageusia [None]
  - Weight decreased [None]
  - Stomatitis [None]
  - Oral pain [None]
